FAERS Safety Report 4335752-2 (Version None)
Quarter: 2004Q2

REPORT INFORMATION
  Report Type: 
  Country: None (occurrence: None)
  Receive Date: 20040409
  Receipt Date: 20040401
  Transmission Date: 20050107
  Serious: Yes (Hospitalization)
  Sender: FDA-Public Use
  Company Number: PHEH2004US03972

PATIENT
  Age: 49 Year
  Sex: Female
  Weight: 106 kg

DRUGS (5)
  1. ZOMETA [Suspect]
     Indication: METASTASES TO BONE
     Dosage: 4 MG, QMO
     Route: 042
     Dates: start: 20020919, end: 20040330
  2. FASLODEX [Concomitant]
     Dosage: 250 MG, QMO
     Route: 030
  3. EFFEXOR XR [Concomitant]
     Dosage: 75 MG, QD
  4. WARFARIN SODIUM [Concomitant]
     Dosage: 1 MG, QD
     Route: 048
  5. PREVACID [Concomitant]
     Dosage: 30 MG, QD

REACTIONS (6)
  - GINGIVAL DISORDER [None]
  - IMPAIRED HEALING [None]
  - OSTECTOMY [None]
  - OSTEOMYELITIS [None]
  - TOOTH EXTRACTION [None]
  - WOUND DEBRIDEMENT [None]
